FAERS Safety Report 5031084-8 (Version None)
Quarter: 2006Q2

REPORT INFORMATION
  Report Type: 
  Country: None (occurrence: None)
  Receive Date: 20060619
  Receipt Date: 20060619
  Transmission Date: 20061013
  Serious: Yes (Other)
  Sender: FDA-Public Use
  Company Number: None

PATIENT
  Age: 29 Year
  Sex: Female
  Weight: 58.0604 kg

DRUGS (2)
  1. LEVAQUIN [Suspect]
     Indication: SURGERY
     Dosage: ALL DAY IV
     Route: 042
     Dates: start: 20060613
  2. HYDROCORDONE [Concomitant]

REACTIONS (5)
  - ASTHENIA [None]
  - INJECTION SITE ERYTHEMA [None]
  - INJECTION SITE PRURITUS [None]
  - INJECTION SITE SWELLING [None]
  - PAIN IN EXTREMITY [None]
